FAERS Safety Report 7370206-0 (Version None)
Quarter: 2011Q1

REPORT INFORMATION
  Report Type: 
  Country: None (occurrence: None)
  Receive Date: 20110323
  Receipt Date: 20101220
  Transmission Date: 20110831
  Serious: No
  Sender: FDA-Public Use
  Company Number: US-ASTRAZENECA-2010SE60365

PATIENT
  Sex: Male

DRUGS (14)
  1. LOVAZA [Concomitant]
  2. CHANTIX [Concomitant]
     Route: 048
  3. FENOFIBRATE [Concomitant]
  4. FLOMAX [Concomitant]
     Route: 048
  5. ROBITUSSIN [Concomitant]
     Dosage: 10MG-100MG/5ML
     Route: 048
  6. ASPIRIN [Concomitant]
     Route: 048
  7. NORVASC [Concomitant]
     Route: 048
  8. LISINOPRIL [Suspect]
     Route: 048
  9. ADVAIR DISKUS 100/50 [Concomitant]
     Dosage: 250MCG-50MCG/DOSE INHL DSDV
  10. ALBUTEROL [Concomitant]
     Dosage: 90MCG/ACTUATION INHL AERO
  11. PROTONIX [Concomitant]
     Route: 048
  12. TOPROL-XL [Concomitant]
     Route: 048
  13. POTASSIUM CHLORIDE [Concomitant]
     Route: 048
  14. SPIRIVA [Concomitant]
     Dosage: WITH HANDIHALER 18MCG INHL CPDV

REACTIONS (1)
  - DRUG HYPERSENSITIVITY [None]
